FAERS Safety Report 23230310 (Version 1)
Quarter: 2023Q4

REPORT INFORMATION
  Report Type: Spontaneous
  Country: US (occurrence: US)
  Receive Date: 20231127
  Receipt Date: 20231127
  Transmission Date: 20240110
  Serious: Yes (Other)
  Sender: FDA-Public Use
  Company Number: US-BAYER-2023A163947

PATIENT
  Age: 44 Year
  Sex: Male

DRUGS (1)
  1. MIRALAX [Suspect]
     Active Substance: POLYETHYLENE GLYCOL 3350
     Indication: Constipation
     Dosage: UNK (ONLY 1 PACK, DISSOLVED  IN 8OZ OF WATER)
     Route: 048
     Dates: start: 20231114, end: 20231114

REACTIONS (3)
  - Heart rate increased [Recovered/Resolved]
  - Hypoaesthesia [None]
  - Muscle fatigue [None]

NARRATIVE: CASE EVENT DATE: 20231114
